FAERS Safety Report 4271686-X (Version None)
Quarter: 2004Q1

REPORT INFORMATION
  Report Type: 
  Country: None (occurrence: None)
  Receive Date: 20040113
  Receipt Date: 20031231
  Transmission Date: 20041129
  Serious: Yes (Hospitalization)
  Sender: FDA-Public Use
  Company Number: 04P-144-0246144-00

PATIENT
  Age: 69 Year
  Sex: Male

DRUGS (6)
  1. DEPAKENE [Suspect]
     Indication: EPILEPSY
     Dosage: 500 MG, 3 IN 1 D, PER ORAL
     Route: 048
     Dates: start: 20031001, end: 20031119
  2. PAROXETINE [Concomitant]
  3. ALPRAZOLAM [Concomitant]
  4. NIFEDIPINE [Concomitant]
  5. PREDNISONE [Concomitant]
  6. ACETYLSALICYLIC ACID SRT [Concomitant]

REACTIONS (6)
  - CEREBRAL ATROPHY [None]
  - DEMENTIA [None]
  - DEMYELINATION [None]
  - ELECTROENCEPHALOGRAM ABNORMAL [None]
  - ISCHAEMIA [None]
  - LEUKOARAIOSIS [None]
